FAERS Safety Report 12337633 (Version 1)
Quarter: 2016Q2

REPORT INFORMATION
  Report Type: Spontaneous
  Country: US (occurrence: US)
  Receive Date: 20160505
  Receipt Date: 20160505
  Transmission Date: 20160815
  Serious: No
  Sender: FDA-Public Use
  Company Number: CIP02002304 WARNER CHILCOTT

PATIENT
  Age: 79 Year
  Sex: Female
  Weight: 49.5 kg

DRUGS (13)
  1. HYDROXYUREA. [Concomitant]
     Active Substance: HYDROXYUREA
  2. ZITHROMAX [Concomitant]
     Active Substance: AZITHROMYCIN DIHYDRATE
  3. PREDNISONE. [Concomitant]
     Active Substance: PREDNISONE
  4. PEPCID [Concomitant]
     Active Substance: FAMOTIDINE
  5. ACTONEL [Suspect]
     Active Substance: RISEDRONATE SODIUM
     Indication: OSTEOPOROSIS
     Route: 048
  6. CENTRUM SILVER [Concomitant]
     Active Substance: MINERALS\VITAMINS
  7. HYDROXYUREA. [Concomitant]
     Active Substance: HYDROXYUREA
     Dates: start: 2013
  8. BABY ASPIRIN [Concomitant]
     Active Substance: ASPIRIN
  9. ACTONEL [Suspect]
     Active Substance: RISEDRONATE SODIUM
     Route: 046
     Dates: start: 1998
  10. ACTONEL [Suspect]
     Active Substance: RISEDRONATE SODIUM
     Route: 048
     Dates: start: 2002
  11. FLOVENT DISKUS [Concomitant]
     Active Substance: FLUTICASONE PROPIONATE
  12. BABY ASPIRIN [Concomitant]
     Active Substance: ASPIRIN
  13. CALCIUM CITRATE [Concomitant]
     Active Substance: CALCIUM CITRATE

REACTIONS (10)
  - Eructation [Not Recovered/Not Resolved]
  - Retinal haemorrhage [Not Recovered/Not Resolved]
  - Nausea [Not Recovered/Not Resolved]
  - Abdominal discomfort [Not Recovered/Not Resolved]
  - Chest pain [Not Recovered/Not Resolved]
  - Blood calcium decreased [Unknown]
  - Asthenia [Not Recovered/Not Resolved]
  - Essential thrombocythaemia [Not Recovered/Not Resolved]
  - Oesophageal discomfort [Not Recovered/Not Resolved]
  - Dyspepsia [Not Recovered/Not Resolved]

NARRATIVE: CASE EVENT DATE: 20021028
